FAERS Safety Report 9317657 (Version 1)
Quarter: 2013Q2

REPORT INFORMATION
  Report Type: Spontaneous
  Country: US (occurrence: US)
  Receive Date: 20130530
  Receipt Date: 20130530
  Transmission Date: 20140414
  Serious: No
  Sender: FDA-Public Use
  Company Number: US-NOVEN-12US005296

PATIENT
  Age: 10 Year
  Sex: Female
  Weight: 19.05 kg

DRUGS (3)
  1. DAYTRANA [Suspect]
     Indication: ATTENTION DEFICIT/HYPERACTIVITY DISORDER
     Dosage: 10 MG, QD
     Route: 062
     Dates: start: 20120901
  2. DERMASOFT [Concomitant]
     Indication: ECZEMA
     Dosage: UNK
     Route: 061
  3. ASTHMA MEDICATION [Concomitant]
     Indication: ASTHMA
     Dosage: UNK
     Route: 055

REACTIONS (7)
  - Disturbance in social behaviour [Not Recovered/Not Resolved]
  - Crying [Recovered/Resolved]
  - Psychomotor hyperactivity [Not Recovered/Not Resolved]
  - Headache [None]
  - Application site erythema [Not Recovered/Not Resolved]
  - Drug ineffective [Not Recovered/Not Resolved]
  - Logorrhoea [Not Recovered/Not Resolved]
